FAERS Safety Report 24687729 (Version 1)
Quarter: 2024Q4

REPORT INFORMATION
  Report Type: Spontaneous
  Country: FR (occurrence: FR)
  Receive Date: 20241202
  Receipt Date: 20241202
  Transmission Date: 20250114
  Serious: Yes (Life-Threatening, Hospitalization)
  Sender: FRESENIUS KABI
  Company Number: None

PATIENT
  Age: 19 Year
  Sex: Male

DRUGS (2)
  1. ROPIVACAINE HYDROCHLORIDE ANHYDROUS [Suspect]
     Active Substance: ROPIVACAINE HYDROCHLORIDE ANHYDROUS
     Indication: Anaesthesia
     Dates: start: 20210311, end: 20210311
  2. LIDOCAINE [Suspect]
     Active Substance: LIDOCAINE
     Indication: Anaesthesia
     Dates: start: 20210311, end: 20210311

REACTIONS (2)
  - Anaphylactic shock [Recovered/Resolved]
  - Cardiogenic shock [Recovered/Resolved]

NARRATIVE: CASE EVENT DATE: 20210311
